FAERS Safety Report 9529857 (Version 3)
Quarter: 2013Q4

REPORT INFORMATION
  Report Type: Spontaneous
  Country: US (occurrence: US)
  Receive Date: 20130917
  Receipt Date: 20131108
  Transmission Date: 20140711
  Serious: No
  Sender: FDA-Public Use
  Company Number: US-PFIZER INC-2013263086

PATIENT
  Sex: Female

DRUGS (1)
  1. TOVIAZ [Suspect]
     Indication: HYPERTONIC BLADDER
     Dosage: 4 MG, 1 TABLET DAILY

REACTIONS (4)
  - Dry mouth [Unknown]
  - Pruritus [Unknown]
  - Ear pruritus [Unknown]
  - Drug ineffective [Unknown]
